FAERS Safety Report 7966960-7 (Version None)
Quarter: 2011Q4

REPORT INFORMATION
  Report Type: 
  Country: None (occurrence: None)
  Receive Date: 20111209
  Receipt Date: 20111130
  Transmission Date: 20120403
  Serious: Yes (Hospitalization, Other)
  Sender: FDA-Public Use
  Company Number: JP-CELGENEUS-087-50794-11120508

PATIENT
  Sex: Female
  Weight: 42 kg

DRUGS (15)
  1. GARENOXACIN MESYLATE [Concomitant]
     Dosage: 400 MILLIGRAM
     Route: 048
     Dates: start: 20110510
  2. NORGESTREL AND ETHINYL ESTRADIOL [Concomitant]
     Route: 048
  3. ALLEGRA [Concomitant]
     Route: 048
     Dates: start: 20110513, end: 20110513
  4. WHOLE BLOOD [Concomitant]
     Route: 041
     Dates: start: 20110510, end: 20110510
  5. OMEPRAZOLE [Concomitant]
     Dosage: 10 MILLIGRAM
     Route: 048
  6. PLATELETS [Concomitant]
     Route: 041
     Dates: start: 20110510, end: 20110510
  7. VIDAZA [Suspect]
     Dosage: 75 MILLIGRAM/SQ. METER
     Route: 041
     Dates: start: 20110516, end: 20110518
  8. BORRAZA-G [Concomitant]
     Dosage: 4.8 GRAM
     Route: 061
     Dates: start: 20110520, end: 20110524
  9. VIDAZA [Suspect]
     Indication: MYELODYSPLASTIC SYNDROME
     Dosage: 75 MILLIGRAM/SQ. METER
     Route: 041
     Dates: start: 20110510, end: 20110513
  10. ITRACONAZOLE [Concomitant]
     Dosage: 45 MILLIGRAM
     Route: 048
  11. RAMELTEON [Concomitant]
     Dosage: .3 MILLIGRAM
     Route: 041
     Dates: start: 20110510, end: 20110513
  12. GENTAMICIN SULFATE [Concomitant]
     Route: 048
     Dates: start: 20110524
  13. DEXTROMETHORPHAN HYDROBROMIDE [Concomitant]
     Dosage: 45 MILLIGRAM
     Route: 048
     Dates: start: 20110510
  14. MUCOSTA [Concomitant]
     Dosage: 300 MILLIGRAM
     Route: 048
  15. LORFENAMIN [Concomitant]
     Dosage: 60 MILLIGRAM
     Route: 048

REACTIONS (5)
  - ASPARTATE AMINOTRANSFERASE INCREASED [None]
  - PERIPROCTITIS [None]
  - HEPATIC FUNCTION ABNORMAL [None]
  - NEUTROPHIL COUNT DECREASED [None]
  - ALANINE AMINOTRANSFERASE INCREASED [None]
